FAERS Safety Report 8823594 (Version 1)
Quarter: 2012Q4

REPORT INFORMATION
  Report Type: 
  Country: US (occurrence: US)
  Receive Date: 20121003
  Receipt Date: 20121003
  Transmission Date: 20130627
  Serious: No
  Sender: FDA-Public Use
  Company Number: US-009507513-1209USA011907

PATIENT
  Sex: Female

DRUGS (2)
  1. MIRALAX [Suspect]
     Indication: FAECES HARD
     Dosage: UNK, Unknown
     Route: 048
     Dates: start: 201205
  2. MIRALAX [Suspect]
     Indication: MEDICAL OBSERVATION

REACTIONS (6)
  - Abdominal distension [Unknown]
  - Flatulence [Unknown]
  - Middle insomnia [Unknown]
  - Aphagia [Unknown]
  - Incorrect drug administration duration [Unknown]
  - Therapeutic product ineffective [Unknown]
